FAERS Safety Report 7957239-8 (Version None)
Quarter: 2011Q4

REPORT INFORMATION
  Report Type: 
  Country: None (occurrence: None)
  Receive Date: 20111201
  Receipt Date: 20111115
  Transmission Date: 20120403
  Serious: Yes (Other)
  Sender: FDA-Public Use
  Company Number: 1000025390

PATIENT
  Age: 61 Year
  Sex: Female
  Weight: 54 kg

DRUGS (3)
  1. LEXAPRO [Suspect]
     Indication: DEPRESSION
     Dosage: 10 MG (10 MG, 1 IN 1 D),ORAL
     Route: 048
     Dates: start: 20111018, end: 20111018
  2. REFLEX (PICOLAMINE SALICYLATE) (PICOLAMINE SALICYLATE) [Concomitant]
  3. WYPAX (LORAZEPAM) (LORAZEPAM) [Concomitant]

REACTIONS (5)
  - CHEST DISCOMFORT [None]
  - HYPERHIDROSIS [None]
  - PERIPHERAL COLDNESS [None]
  - FEELING HOT [None]
  - INSOMNIA [None]
